FAERS Safety Report 12332009 (Version 1)
Quarter: 2016Q2

REPORT INFORMATION
  Report Type: Spontaneous
  Country: US (occurrence: US)
  Receive Date: 20160504
  Receipt Date: 20160504
  Transmission Date: 20160815
  Serious: No
  Sender: FDA-Public Use
  Company Number: US-PFIZER INC-2016209608

PATIENT
  Age: 50 Year
  Sex: Female
  Weight: 46.27 kg

DRUGS (1)
  1. ZOLOFT [Suspect]
     Active Substance: SERTRALINE HYDROCHLORIDE
     Indication: DEPRESSION
     Dosage: UNCERTAIN ONCE A DAY
     Route: 048

REACTIONS (1)
  - Drug ineffective [Unknown]
